FAERS Safety Report 11844470 (Version 1)
Quarter: 2015Q4

REPORT INFORMATION
  Report Type: Spontaneous
  Country: DE (occurrence: DE)
  Receive Date: 20151217
  Receipt Date: 20151217
  Transmission Date: 20160305
  Serious: Yes (Hospitalization, Other)
  Sender: FDA-Public Use
  Company Number: DE-REGENERON PHARMACEUTICALS, INC.-2014-20042

PATIENT

DRUGS (3)
  1. EYLEA [Suspect]
     Active Substance: AFLIBERCEPT
     Indication: NEOVASCULAR AGE-RELATED MACULAR DEGENERATION
     Dosage: DAILY DOSE 1 DF
     Route: 031
     Dates: start: 20140411, end: 20140411
  2. EYLEA [Suspect]
     Active Substance: AFLIBERCEPT
     Dosage: 1 DF, UNK
     Route: 031
     Dates: start: 20140606, end: 20140606
  3. EYLEA [Suspect]
     Active Substance: AFLIBERCEPT
     Dosage: 1 DF, UNK
     Route: 031
     Dates: start: 20140509, end: 20140509

REACTIONS (2)
  - Vitreous disorder [Unknown]
  - Macular hole [Unknown]

NARRATIVE: CASE EVENT DATE: 20140701
